FAERS Safety Report 8169769-7 (Version None)
Quarter: 2012Q1

REPORT INFORMATION
  Report Type: 
  Country: None (occurrence: None)
  Receive Date: 20120228
  Receipt Date: 20120221
  Transmission Date: 20120608
  Serious: Yes (Hospitalization, Other)
  Sender: FDA-Public Use
  Company Number: US-AMGEN-USASP2012011738

PATIENT
  Age: 33 Year
  Sex: Male
  Weight: 140 kg

DRUGS (6)
  1. EPOGEN [Suspect]
     Dosage: 10000 IU, 3 TIMES/WK
     Route: 058
     Dates: start: 20120104, end: 20120120
  2. EPOGEN [Suspect]
     Dosage: 6000 IU, QWK
     Route: 058
     Dates: start: 20111102, end: 20111212
  3. EPOGEN [Suspect]
     Dosage: 15000 IU, 3 TIMES/WK
     Route: 058
     Dates: start: 20120120
  4. EPOGEN [Suspect]
     Indication: NEPHROGENIC ANAEMIA
     Dosage: 5000 IU, QWK
     Route: 058
     Dates: start: 20090601, end: 20111102
  5. EPOGEN [Suspect]
     Dosage: 12000 IU, QWK
     Route: 058
     Dates: start: 20111212, end: 20120104
  6. EPOGEN [Suspect]
     Dosage: 20000 IU, 3 TIMES/WK
     Route: 058
     Dates: start: 20120126

REACTIONS (2)
  - HAEMOGLOBIN DECREASED [None]
  - THERAPEUTIC RESPONSE DECREASED [None]
